FAERS Safety Report 6970067-5 (Version None)
Quarter: 2010Q3

REPORT INFORMATION
  Report Type: 
  Country: None (occurrence: None)
  Receive Date: 20100903
  Receipt Date: 20100805
  Transmission Date: 20110219
  Serious: Yes (Other)
  Sender: FDA-Public Use
  Company Number: 2010EU003697

PATIENT
  Age: 64 Year
  Sex: Female

DRUGS (5)
  1. SOLIFENACIN (SOLIFENACIN) TABLET [Suspect]
     Indication: INCONTINENCE
     Dosage: 10 MG UNKNOWN/D, ORAL
     Route: 048
     Dates: start: 20100501
  2. BISOPROLOL FUMARATE [Concomitant]
  3. LANSOPRAZOLE [Concomitant]
  4. LEVOTHYROXINE SODIUM [Concomitant]
  5. PHENYTOIN [Concomitant]

REACTIONS (1)
  - DYSPNOEA [None]
